FAERS Safety Report 9978928 (Version 1)
Quarter: 2014Q1

REPORT INFORMATION
  Report Type: Report from Study
  Country: US (occurrence: US)
  Receive Date: 20140306
  Receipt Date: 20140306
  Transmission Date: 20141002
  Serious: No
  Sender: FDA-Public Use
  Company Number: US-ABBVIE-13P-163-1168906-00

PATIENT
  Age: 63 Year
  Sex: Female

DRUGS (9)
  1. HUMIRA [Suspect]
     Indication: COLITIS ULCERATIVE
     Dates: start: 20131107, end: 20131107
  2. HUMIRA [Suspect]
  3. GLYBURIDE/METFORMIN [Concomitant]
     Indication: DIABETES MELLITUS
     Dosage: 5/500 MG 2 TABS
     Route: 048
  4. JANUVIA [Concomitant]
     Indication: DIABETES MELLITUS
     Route: 048
  5. DILTIAZEM [Concomitant]
     Indication: HYPERTENSION
     Route: 048
  6. LOSARTAN/HYDROCHLOROTHIAZIDE [Concomitant]
     Indication: HYPERTENSION
     Dosage: 100/12.5 MG DAILY
     Route: 048
  7. VALACYCLOVIR HCL [Concomitant]
     Indication: HERPES ZOSTER
     Route: 048
  8. VALACYCLOVIR HCL [Concomitant]
     Indication: HERPES SIMPLEX
  9. VALACYCLOVIR HCL [Concomitant]
     Indication: CELLULITIS

REACTIONS (2)
  - Abdominal tenderness [Not Recovered/Not Resolved]
  - Diarrhoea [Not Recovered/Not Resolved]
